FAERS Safety Report 15993962 (Version 1)
Quarter: 2019Q1

REPORT INFORMATION
  Report Type: Spontaneous
  Country: US (occurrence: US)
  Receive Date: 20190222
  Receipt Date: 20190222
  Transmission Date: 20190418
  Serious: Yes (Other)
  Sender: FDA-Public Use
  Company Number: US-CURIUM-199200070

PATIENT
  Age: 62 Year
  Sex: Female

DRUGS (1)
  1. SODIUM IODIDE (I 123) (200) [Suspect]
     Active Substance: SODIUM IODIDE I-123

REACTIONS (3)
  - Respiratory arrest [Recovering/Resolving]
  - Swollen tongue [Recovering/Resolving]
  - Urticaria [Recovering/Resolving]
